FAERS Safety Report 15234911 (Version 3)
Quarter: 2021Q3

REPORT INFORMATION
  Report Type: Spontaneous
  Country: US (occurrence: US)
  Receive Date: 20180803
  Receipt Date: 20210809
  Transmission Date: 20211014
  Serious: Yes (Other)
  Sender: FDA-Public Use
  Company Number: US-ACCORD-065008

PATIENT
  Age: 65 Year
  Sex: Female
  Weight: 79.38 kg

DRUGS (16)
  1. FLUTICASONE. [Concomitant]
     Active Substance: FLUTICASONE
     Dates: start: 20150915
  2. AMLODIPINE [Concomitant]
     Active Substance: AMLODIPINE BESYLATE
     Dates: start: 20150930
  3. MELOXICAM. [Concomitant]
     Active Substance: MELOXICAM
     Dates: start: 20120101
  4. MONTELUKAST [Concomitant]
     Active Substance: MONTELUKAST SODIUM
     Dates: start: 20120915
  5. LOSARTAN. [Concomitant]
     Active Substance: LOSARTAN
  6. GLYBURIDE. [Concomitant]
     Active Substance: GLYBURIDE
     Dates: start: 20080101
  7. RIVASTIGMINE/RIVASTIGMINE TARTRATE [Concomitant]
     Active Substance: RIVASTIGMINE
     Dates: start: 20120915
  8. ANASTROZOLE. [Concomitant]
     Active Substance: ANASTROZOLE
  9. HYDROCODONE/PARACETAMOL [Concomitant]
     Active Substance: ACETAMINOPHEN\HYDROCODONE BITARTRATE
  10. CARVEDILOL/CARVEDILOL HYDROCHLODRIDE [Concomitant]
     Active Substance: CARVEDILOL HYDROCHLORIDE
  11. DOCETAXEL ACCORD [Suspect]
     Active Substance: DOCETAXEL
     Indication: BREAST CANCER METASTATIC
     Dates: start: 20151112, end: 20160428
  12. LISINOPRIL. [Concomitant]
     Active Substance: LISINOPRIL
  13. HERCEPTIN [Suspect]
     Active Substance: TRASTUZUMAB
     Indication: BREAST CANCER METASTATIC
  14. PERJETA [Suspect]
     Active Substance: PERTUZUMAB
     Indication: BREAST CANCER METASTATIC
  15. VENTOLIN [Concomitant]
     Active Substance: ALBUTEROL SULFATE
     Dates: start: 20120915
  16. METFORMIN [Concomitant]
     Active Substance: METFORMIN HYDROCHLORIDE
     Dates: start: 20080101

REACTIONS (1)
  - Alopecia [Not Recovered/Not Resolved]

NARRATIVE: CASE EVENT DATE: 20170101
